FAERS Safety Report 10395276 (Version 4)
Quarter: 2019Q3

REPORT INFORMATION
  Report Type: Report from Study
  Country: BR (occurrence: BR)
  Receive Date: 20140820
  Receipt Date: 20190729
  Transmission Date: 20191004
  Serious: Yes (Life-Threatening, Other)
  Sender: FDA-Public Use
  Company Number: PHHY2014BR102521

PATIENT
  Sex: Female
  Weight: 85 kg

DRUGS (11)
  1. SANDOSTATIN LAR DEPOT [Suspect]
     Active Substance: OCTREOTIDE ACETATE
     Dosage: 30 MG, QMO
     Route: 030
  2. PURAN [Concomitant]
     Active Substance: LEVOTHYROXINE SODIUM
     Indication: THYROID DISORDER
     Dosage: 1 DF, QD
     Route: 048
  3. SANDOSTATIN LAR DEPOT [Suspect]
     Active Substance: OCTREOTIDE ACETATE
     Dosage: 30 MG, EVERY 45 DAYS
     Route: 030
  4. METICORTEN [Concomitant]
     Active Substance: PREDNISONE
     Indication: HYPOTHALAMO-PITUITARY DISORDER
     Dosage: 5 MG, QD
     Route: 048
     Dates: start: 1995
  5. PREDNISONE. [Concomitant]
     Active Substance: PREDNISONE
     Indication: PRODUCT USED FOR UNKNOWN INDICATION
     Dosage: 5 MG, QD
     Route: 065
  6. PARLODEL [Concomitant]
     Active Substance: BROMOCRIPTINE MESYLATE
     Indication: PRODUCT USED FOR UNKNOWN INDICATION
     Route: 065
  7. SANDOSTATIN LAR DEPOT [Suspect]
     Active Substance: OCTREOTIDE ACETATE
     Dosage: 20 MG, Q2MO EVERY 2 MONTHS
     Route: 030
  8. LEVOTHYROXINE. [Concomitant]
     Active Substance: LEVOTHYROXINE
     Indication: THYROID DISORDER
     Dosage: 25 MG, QD
     Route: 065
  9. SANDOSTATIN LAR DEPOT [Suspect]
     Active Substance: OCTREOTIDE ACETATE
     Indication: ACROMEGALY
     Dosage: UNK
     Route: 030
     Dates: start: 1998
  10. LEVOTHYROXINE. [Concomitant]
     Active Substance: LEVOTHYROXINE
     Dosage: 28 MG, QD
     Route: 065
  11. SANDOSTATIN LAR DEPOT [Suspect]
     Active Substance: OCTREOTIDE ACETATE
     Dosage: 20 MG, UNK
     Route: 030
     Dates: start: 2002

REACTIONS (23)
  - Body height decreased [Not Recovered/Not Resolved]
  - Malaise [Unknown]
  - Limb asymmetry [Not Recovered/Not Resolved]
  - Influenza [Recovering/Resolving]
  - Inappropriate schedule of product administration [Unknown]
  - Feeling abnormal [Not Recovered/Not Resolved]
  - Pain [Unknown]
  - Bone pain [Unknown]
  - Psychiatric symptom [Unknown]
  - Muscle strain [Unknown]
  - Gait disturbance [Unknown]
  - Pyrexia [Recovering/Resolving]
  - Decreased appetite [Unknown]
  - Headache [Unknown]
  - Gallbladder disorder [Recovered/Resolved]
  - Femur fracture [Unknown]
  - Body height increased [Unknown]
  - Post procedural complication [Not Recovered/Not Resolved]
  - Memory impairment [Unknown]
  - Hyperhidrosis [Unknown]
  - Chikungunya virus infection [Not Recovered/Not Resolved]
  - Eating disorder [Unknown]
  - Pain in extremity [Not Recovered/Not Resolved]
